FAERS Safety Report 7719677-8 (Version None)
Quarter: 2011Q3

REPORT INFORMATION
  Report Type: 
  Country: None (occurrence: None)
  Receive Date: 20110830
  Receipt Date: 20110823
  Transmission Date: 20111222
  Serious: Yes (Hospitalization)
  Sender: FDA-Public Use
  Company Number: US-ABBOTT-11P-163-0849112-00

PATIENT
  Sex: Female
  Weight: 131.21 kg

DRUGS (8)
  1. GLIMEPIRIDE [Concomitant]
     Indication: TYPE 2 DIABETES MELLITUS
  2. PANTOPRAZOLE [Concomitant]
     Indication: GASTROOESOPHAGEAL REFLUX DISEASE
  3. SINGULAIR [Concomitant]
     Indication: ASTHMA
  4. METHOTREXATE [Concomitant]
     Indication: RHEUMATOID ARTHRITIS
  5. CRESTOR [Concomitant]
     Indication: BLOOD CHOLESTEROL INCREASED
  6. PREDNISONE [Concomitant]
     Indication: RHEUMATOID ARTHRITIS
  7. NOVOLOG [Concomitant]
     Indication: TYPE 2 DIABETES MELLITUS
  8. HUMIRA [Suspect]
     Indication: RHEUMATOID ARTHRITIS
     Dates: end: 20110801

REACTIONS (8)
  - PAIN IN EXTREMITY [None]
  - MASS [None]
  - FATIGUE [None]
  - FEELING HOT [None]
  - TENOSYNOVITIS [None]
  - INFECTION [None]
  - CELLULITIS [None]
  - JOINT SWELLING [None]
